FAERS Safety Report 23927728 (Version 3)
Quarter: 2024Q2

REPORT INFORMATION
  Report Type: Spontaneous
  Country: JP (occurrence: JP)
  Receive Date: 20240531
  Receipt Date: 20240621
  Transmission Date: 20240717
  Serious: Yes (Death, Hospitalization, Other)
  Sender: FDA-Public Use
  Company Number: JP-Eisai-202402342_LEN-EC_P_1

PATIENT
  Age: 76 Year
  Sex: Female

DRUGS (2)
  1. LENVATINIB [Suspect]
     Active Substance: LENVATINIB
     Indication: Endometrial cancer
     Dosage: DOSE AND FREQUENCY UNKNOWN
     Route: 048
  2. PEMBROLIZUMAB [Concomitant]
     Active Substance: PEMBROLIZUMAB
     Indication: Endometrial cancer
     Dosage: DOSE AND FREQUENCY UNKNOWN
     Route: 041

REACTIONS (5)
  - Aortic dissection [Fatal]
  - Interstitial lung disease [Unknown]
  - Pleural effusion [Unknown]
  - Abdominal pain [Unknown]
  - Blood pressure increased [Recovering/Resolving]
